FAERS Safety Report 19016227 (Version 1)
Quarter: 2021Q1

REPORT INFORMATION
  Report Type: Report from Study
  Country: None (occurrence: AU)
  Receive Date: 20210316
  Receipt Date: 20210316
  Transmission Date: 20210420
  Serious: Yes (Hospitalization)
  Sender: FDA-Public Use
  Company Number: AU-ABBVIE-21P-008-3795228-00

PATIENT
  Age: 68 Year
  Sex: Female
  Weight: 87.7 kg

DRUGS (23)
  1. DEXAMETHASONE. [Suspect]
     Active Substance: DEXAMETHASONE
     Indication: PLASMA CELL MYELOMA
     Dosage: C1? 8: DAYS 1,2 4,5,8,9,11 + 12 OF 21D CYCLE; C9+:DAYS 1,2,8,9,15,16,22 + 23 OF 35D CYCLE
     Route: 048
     Dates: start: 20170606
  2. GRANISETRON [Concomitant]
     Active Substance: GRANISETRON
     Indication: PROPHYLAXIS OF NAUSEA AND VOMITING
     Dosage: FREQUENCY: (WITH BORTEZOMIB)
     Route: 048
     Dates: start: 20170606
  3. FRUSEMIDE [Concomitant]
     Active Substance: FUROSEMIDE
     Indication: OEDEMA PERIPHERAL
     Route: 048
     Dates: start: 20190328
  4. INTRAGAM 10% [Concomitant]
     Indication: IMMUNE SYSTEM DISORDER
  5. VENETOCLAX. [Suspect]
     Active Substance: VENETOCLAX
     Route: 048
     Dates: start: 20210301, end: 20210301
  6. MAXOLON [Concomitant]
     Active Substance: METOCLOPRAMIDE HYDROCHLORIDE
     Indication: NAUSEA
     Route: 048
     Dates: start: 20170606
  7. VALACICLOVIR [Concomitant]
     Active Substance: VALACYCLOVIR HYDROCHLORIDE
     Indication: ANTIVIRAL PROPHYLAXIS
     Route: 048
     Dates: start: 20170606
  8. METOPROLOL. [Concomitant]
     Active Substance: METOPROLOL
     Indication: ATRIAL FIBRILLATION
     Route: 048
     Dates: start: 20200831, end: 20210111
  9. BORTEZOMIB. [Suspect]
     Active Substance: BORTEZOMIB
     Indication: PLASMA CELL MYELOMA
     Dosage: C 1?8: DAYS 1, 4, 8 AND 11 OF 21 DAY CYCLE; CYCLE 9+: DAYS 1, 8, 15 AND 22 OF 35 DAY CYCLE
     Route: 058
     Dates: start: 20170606
  10. SOTOLOL HYDROCHLORIDE [Concomitant]
     Indication: ATRIAL FIBRILLATION
     Route: 048
     Dates: start: 20210203
  11. ENDONE [Concomitant]
     Active Substance: OXYCODONE HYDROCHLORIDE
     Indication: NEURALGIA
     Route: 048
     Dates: start: 2015
  12. PREGABALIN. [Concomitant]
     Active Substance: PREGABALIN
     Indication: NEURALGIA
     Dosage: FREQUENCY: (MANE)
     Route: 048
     Dates: start: 20190122
  13. PREGABALIN. [Concomitant]
     Active Substance: PREGABALIN
     Dosage: FREQUENCY: (NOCTE)
     Route: 048
     Dates: start: 20190122
  14. PARACETAMOL [Concomitant]
     Active Substance: ACETAMINOPHEN
     Indication: INFLUENZA LIKE ILLNESS
  15. VENETOCLAX. [Suspect]
     Active Substance: VENETOCLAX
     Route: 048
     Dates: start: 20210308
  16. PANTOPRAZOLE [Concomitant]
     Active Substance: PANTOPRAZOLE
     Indication: PROPHYLAXIS
     Route: 048
     Dates: start: 2017
  17. APIXABAN [Concomitant]
     Active Substance: APIXABAN
     Indication: THROMBOSIS
     Route: 048
     Dates: start: 20190415
  18. VENETOCLAX. [Suspect]
     Active Substance: VENETOCLAX
     Indication: PLASMA CELL MYELOMA
     Route: 048
     Dates: start: 20170606, end: 20210226
  19. PARACETAMOL [Concomitant]
     Active Substance: ACETAMINOPHEN
     Indication: PYREXIA
     Route: 048
     Dates: start: 20170703
  20. MAXIGESIC (PARACETAMOL AND IBUPROFEN) [Concomitant]
     Indication: WISDOM TEETH REMOVAL
     Dosage: DOSE: 500/ 150 MG
     Route: 048
     Dates: start: 20190222
  21. BACTRIM [Concomitant]
     Active Substance: SULFAMETHOXAZOLE\TRIMETHOPRIM
     Indication: ANTIBIOTIC PROPHYLAXIS
     Dosage: DOSE: 400/80 MG
     Route: 048
     Dates: start: 20191015
  22. CLOTRIMAZOLE 10MG/G [Concomitant]
     Indication: CANDIDA INFECTION
     Dosage: DOSE:1 (APPLICATION)
     Route: 067
     Dates: start: 20210104
  23. INTRAGAM 10% [Concomitant]
     Indication: INFECTION PROPHYLAXIS
     Route: 042
     Dates: start: 20200928

REACTIONS (1)
  - Gastroenteritis [Recovered/Resolved]

NARRATIVE: CASE EVENT DATE: 20210301
